FAERS Safety Report 8487721-9 (Version None)
Quarter: 2012Q3

REPORT INFORMATION
  Report Type: 
  Country: None (occurrence: None)
  Receive Date: 20120705
  Receipt Date: 20120702
  Transmission Date: 20120928
  Serious: Yes (Other)
  Sender: FDA-Public Use
  Company Number: US-SP-2011-11996

PATIENT
  Sex: Female

DRUGS (1)
  1. TUBERSOL [Suspect]
     Indication: TUBERCULIN TEST
     Route: 065
     Dates: start: 20111024, end: 20111024

REACTIONS (11)
  - URTICARIA [None]
  - LIP SWELLING [None]
  - NAUSEA [None]
  - RASH ERYTHEMATOUS [None]
  - ANGIOEDEMA [None]
  - HYPERHIDROSIS [None]
  - SWELLING FACE [None]
  - LYMPHADENOPATHY [None]
  - INJECTION SITE INFLAMMATION [None]
  - SWOLLEN TONGUE [None]
  - PRESYNCOPE [None]
